FAERS Safety Report 17635338 (Version 1)
Quarter: 2020Q2

REPORT INFORMATION
  Report Type: Spontaneous
  Country: ES (occurrence: ES)
  Receive Date: 20200407
  Receipt Date: 20200407
  Transmission Date: 20200713
  Serious: Yes (Life-Threatening, Hospitalization)
  Sender: FDA-Public Use
  Company Number: ES-SUN PHARMACEUTICAL INDUSTRIES LTD-2020RR-243016

PATIENT
  Age: 22 Year
  Sex: Female

DRUGS (1)
  1. PARACETAMOL [Suspect]
     Active Substance: ACETAMINOPHEN
     Indication: PRODUCT USED FOR UNKNOWN INDICATION
     Dosage: REFIERE INGESTA DE 4 BLISTERS (40 COMPRIMIDOS) DE PARACETAMOL DE 1 GR (40GR TOTAL). ; IN TOTAL
     Route: 048
     Dates: start: 20191011, end: 20191011

REACTIONS (3)
  - Suicide attempt [Unknown]
  - Hypocoagulable state [Recovered/Resolved]
  - Hepatocellular injury [Recovering/Resolving]

NARRATIVE: CASE EVENT DATE: 20191012
